FAERS Safety Report 7974211-2 (Version None)
Quarter: 2011Q4

REPORT INFORMATION
  Report Type: 
  Country: None (occurrence: None)
  Receive Date: 20111213
  Receipt Date: 20111129
  Transmission Date: 20120403
  Serious: Yes (Hospitalization)
  Sender: FDA-Public Use
  Company Number: JP-AMGEN-JPNCT2011009785

PATIENT
  Age: 67 Year
  Sex: Male
  Weight: 86 kg

DRUGS (18)
  1. AMARYL [Concomitant]
     Dosage: UNK
     Route: 048
  2. PANITUMUMAB [Suspect]
     Indication: COLORECTAL CANCER METASTATIC
     Dosage: 6 MG/KG, Q2WK
     Route: 041
     Dates: start: 20101201, end: 20110112
  3. OXALIPLATIN [Concomitant]
     Indication: COLORECTAL CANCER
     Route: 041
     Dates: start: 20101201
  4. CORTICOSTEROIDS [Concomitant]
     Indication: PROPHYLAXIS
     Dosage: UNK
     Route: 065
  5. ZANTAC [Concomitant]
     Dosage: UNK
     Route: 042
  6. ISOSORBIDE DINITRATE [Concomitant]
     Dosage: UNK
     Route: 062
  7. ENALAPRIL MALEATE [Concomitant]
     Dosage: UNK
     Route: 048
  8. FLUOROURACIL [Concomitant]
     Indication: COLORECTAL CANCER
     Route: 040
     Dates: start: 20101201
  9. MAGNESIUM SULFATE [Concomitant]
     Dosage: UNK
     Route: 042
  10. PANITUMUMAB [Suspect]
     Dosage: 6 MG/KG, Q2WK
     Route: 041
     Dates: start: 20110209, end: 20110302
  11. FLUOROURACIL [Concomitant]
     Route: 041
     Dates: start: 20101201
  12. LEVOLEUCOVORIN CALCIUM [Concomitant]
     Indication: COLORECTAL CANCER
     Route: 041
     Dates: start: 20101201
  13. ALOXI [Concomitant]
     Dosage: UNK
     Route: 042
  14. CALCIUM CARBONATE [Concomitant]
     Dosage: UNK
     Route: 042
  15. PANITUMUMAB [Suspect]
     Dosage: 6 MG/KG, Q2WK
     Route: 041
     Dates: start: 20110330, end: 20110413
  16. PANITUMUMAB [Suspect]
     Dosage: 6 MG/KG, Q2WK
     Dates: start: 20110509, end: 20110509
  17. PANITUMUMAB [Suspect]
     Dosage: 6 MG/KG, Q2WK
     Route: 041
     Dates: start: 20110808, end: 20110905
  18. DEXAMETHASONE SODIUM PHOSPHATE [Concomitant]
     Dosage: UNK
     Route: 042

REACTIONS (3)
  - PNEUMONIA [None]
  - PARONYCHIA [None]
  - DERMATITIS ACNEIFORM [None]
